FAERS Safety Report 23883698 (Version 1)
Quarter: 2024Q2

REPORT INFORMATION
  Report Type: Spontaneous
  Country: IN (occurrence: IN)
  Receive Date: 20240522
  Receipt Date: 20240522
  Transmission Date: 20240716
  Serious: Yes (Hospitalization, Other)
  Sender: FDA-Public Use
  Company Number: IN-GRANULES-IN-2024GRALIT00166

PATIENT
  Age: 68 Year
  Sex: Male

DRUGS (4)
  1. METFORMIN HYDROCHLORIDE [Suspect]
     Active Substance: METFORMIN HYDROCHLORIDE
     Indication: Diabetes mellitus
     Route: 065
  2. GLYBURIDE [Concomitant]
     Active Substance: GLYBURIDE
     Indication: Diabetes mellitus
     Route: 065
  3. SITAGLIPTIN [Concomitant]
     Active Substance: SITAGLIPTIN
     Indication: Diabetes mellitus
     Route: 065
  4. DICLOFENAC [Concomitant]
     Active Substance: DICLOFENAC
     Indication: Pain
     Route: 065

REACTIONS (4)
  - Renal impairment [Recovered/Resolved]
  - Blindness transient [Recovered/Resolved]
  - Metabolic acidosis [Recovered/Resolved]
  - Lactic acidosis [Recovered/Resolved]
